FAERS Safety Report 4512813-6 (Version None)
Quarter: 2004Q4

REPORT INFORMATION
  Report Type: 
  Country: None (occurrence: None)
  Receive Date: 20041130
  Receipt Date: 20041117
  Transmission Date: 20050328
  Serious: Yes (Hospitalization)
  Sender: FDA-Public Use
  Company Number: NL-JNJFOC-20041104455

PATIENT
  Sex: Female
  Weight: 49 kg

DRUGS (7)
  1. INFLIXIMAB [Suspect]
     Indication: CROHN'S DISEASE
     Route: 042
  2. PANTOPRAZOLE [Concomitant]
     Indication: CROHN'S DISEASE
  3. MESALAMINE [Concomitant]
     Indication: CROHN'S DISEASE
  4. AZATHIOPRINE [Concomitant]
     Indication: CROHN'S DISEASE
  5. FOSAMAX [Concomitant]
     Indication: OSTEOPOROSIS
  6. HYDROXYCOBALAMINE [Concomitant]
  7. CALCICHEW [Concomitant]

REACTIONS (1)
  - CLOSTRIDIUM COLITIS [None]
